FAERS Safety Report 9955020 (Version 2)
Quarter: 2014Q1

REPORT INFORMATION
  Report Type: Report from Study
  Country: PR (occurrence: PR)
  Receive Date: 20140304
  Receipt Date: 20140304
  Transmission Date: 20141002
  Serious: No
  Sender: FDA-Public Use
  Company Number: PR-ABBVIE-12P-131-0933265-00

PATIENT
  Age: 54 Year
  Sex: Female
  Weight: 89.44 kg

DRUGS (11)
  1. HUMIRA [Suspect]
     Indication: PSORIATIC ARTHROPATHY
     Route: 058
     Dates: start: 2004, end: 201212
  2. HUMIRA [Suspect]
     Route: 058
     Dates: start: 201212
  3. METHOTREXATE [Concomitant]
     Indication: ARTHRITIS
     Route: 058
  4. AZULFIDINE [Concomitant]
     Indication: ARTHRITIS
     Route: 048
  5. PREDNISONE [Concomitant]
     Indication: ARTHRITIS
     Route: 048
  6. FOLIC ACID [Concomitant]
     Indication: ARTHRITIS
     Route: 048
  7. HYZAAR [Concomitant]
     Indication: HYPERTENSION
     Dosage: 50/12.5MG
     Route: 048
  8. CRESTOR [Concomitant]
     Indication: BLOOD CHOLESTEROL
     Route: 048
  9. ZOLOFT [Concomitant]
     Indication: DEPRESSION
     Route: 048
  10. KLONOPIN [Concomitant]
     Indication: DEPRESSION
     Route: 050
  11. DESIREL [Concomitant]
     Indication: INSOMNIA
     Dosage: AT NIGHT
     Route: 048

REACTIONS (6)
  - Thermal burn [Recovered/Resolved]
  - Local swelling [Recovered/Resolved]
  - Drug therapy [Recovered/Resolved]
  - Hypersensitivity [Recovered/Resolved]
  - Headache [Recovered/Resolved]
  - Kidney infection [Recovered/Resolved]
